FAERS Safety Report 8052459-9 (Version None)
Quarter: 2012Q1

REPORT INFORMATION
  Report Type: 
  Country: None (occurrence: None)
  Receive Date: 20120118
  Receipt Date: 20120112
  Transmission Date: 20120608
  Serious: Yes (Hospitalization, Other)
  Sender: FDA-Public Use
  Company Number: US-PFIZER INC-2012010062

PATIENT
  Sex: Male
  Weight: 81 kg

DRUGS (4)
  1. PHENOBARBITAL [Concomitant]
     Dosage: UNK
  2. DILANTIN [Suspect]
     Indication: CONVULSION
     Dosage: 100 MG, 4X/DAY
     Route: 048
  3. DILANTIN [Suspect]
     Route: 048
  4. PHENYTOIN [Suspect]
     Dosage: UNK

REACTIONS (6)
  - GRAND MAL CONVULSION [None]
  - LUNG DISORDER [None]
  - NERVOUS SYSTEM DISORDER [None]
  - VITAMIN B12 DECREASED [None]
  - CONVULSION [None]
  - DRUG EFFECT DECREASED [None]
